FAERS Safety Report 20690888 (Version 1)
Quarter: 2022Q2

REPORT INFORMATION
  Report Type: Spontaneous
  Country: US (occurrence: US)
  Receive Date: 20220408
  Receipt Date: 20220408
  Transmission Date: 20220721
  Serious: No
  Sender: FDA-Public Use
  Company Number: US-FERRINGPH-2021FE01598

PATIENT
  Age: 73 Year
  Sex: Male
  Weight: 98 kg

DRUGS (1)
  1. FIRMAGON [Suspect]
     Active Substance: DEGARELIX ACETATE
     Indication: Off label use
     Dosage: RECEIVED TWO INJECTIONS AT THE SAME TIME
     Route: 065
     Dates: start: 20210217

REACTIONS (4)
  - Cold sweat [Not Recovered/Not Resolved]
  - Libido decreased [Not Recovered/Not Resolved]
  - Off label use [Unknown]
  - Hot flush [Not Recovered/Not Resolved]

NARRATIVE: CASE EVENT DATE: 20210201
